FAERS Safety Report 17112138 (Version 1)
Quarter: 2019Q4

REPORT INFORMATION
  Report Type: Spontaneous
  Country: US (occurrence: US)
  Receive Date: 20191204
  Receipt Date: 20191204
  Transmission Date: 20200122
  Serious: No
  Sender: FDA-Public Use
  Company Number: US-AMAG PHARMACEUTICALS, INC.-AMAG201906173

PATIENT
  Sex: Female
  Weight: 50.85 kg

DRUGS (5)
  1. ^VAGINAL CREAM^ [Concomitant]
     Dosage: NO FURTHER INFORMATION WAS REPORTED.
  2. INTRAROSA [Suspect]
     Active Substance: PRASTERONE
     Indication: DYSURIA
  3. INTRAROSA [Suspect]
     Active Substance: PRASTERONE
     Indication: ATROPHIC VULVOVAGINITIS
  4. INTRAROSA [Suspect]
     Active Substance: PRASTERONE
     Indication: VULVOVAGINAL DRYNESS
  5. INTRAROSA [Suspect]
     Active Substance: PRASTERONE
     Indication: VULVOVAGINAL DISCOMFORT
     Route: 067
     Dates: start: 2019

REACTIONS (3)
  - Product administration error [Unknown]
  - Off label use [Unknown]
  - Intentional underdose [Unknown]

NARRATIVE: CASE EVENT DATE: 2019
